FAERS Safety Report 16884538 (Version 1)
Quarter: 2019Q4

REPORT INFORMATION
  Report Type: Spontaneous
  Country: US (occurrence: US)
  Receive Date: 20191003
  Receipt Date: 20191003
  Transmission Date: 20200122
  Serious: Yes (Life-Threatening, Other)
  Sender: FDA-Public Use
  Company Number: None

PATIENT
  Sex: Female

DRUGS (1)
  1. PROAIR HFA [Suspect]
     Active Substance: ALBUTEROL SULFATE
     Indication: ASTHMA
     Route: 055
     Dates: start: 20190201

REACTIONS (6)
  - Device malfunction [None]
  - Insurance issue [None]
  - Quality of life decreased [None]
  - Chest discomfort [None]
  - Drug ineffective [None]
  - Dyspnoea [None]

NARRATIVE: CASE EVENT DATE: 20190201
